FAERS Safety Report 19079097 (Version 1)
Quarter: 2021Q1

REPORT INFORMATION
  Report Type: Spontaneous
  Country: US (occurrence: US)
  Receive Date: 20210331
  Receipt Date: 20210331
  Transmission Date: 20210420
  Serious: No
  Sender: FDA-Public Use
  Company Number: US-ASTRAZENECA-2021A177408

PATIENT

DRUGS (28)
  1. INDERAL [Concomitant]
     Active Substance: PROPRANOLOL HYDROCHLORIDE
  2. ACCURETIC AGGRENOX [Concomitant]
  3. DILACOR [Concomitant]
  4. MAGNESIUM OXID [Suspect]
     Active Substance: MAGNESIUM OXIDE
     Dosage: 400.0MG UNKNOWN
     Route: 065
  5. CODEINE [Concomitant]
     Active Substance: CODEINE
  6. TALWIN [Concomitant]
     Active Substance: PENTAZOCINE LACTATE
  7. MORPHINE [Concomitant]
     Active Substance: MORPHINE
  8. CARDURA [Concomitant]
     Active Substance: DOXAZOSIN MESYLATE
  9. VALIUM [Concomitant]
     Active Substance: DIAZEPAM
  10. ACTONEL [Concomitant]
     Active Substance: RISEDRONATE SODIUM
  11. CHANTIX [Suspect]
     Active Substance: VARENICLINE TARTRATE
     Route: 065
  12. LAMICTAL (GENERIC) [Suspect]
     Active Substance: LAMOTRIGINE
     Route: 065
  13. BACTRIM [Suspect]
     Active Substance: SULFAMETHOXAZOLE\TRIMETHOPRIM
     Route: 065
  14. IMITREX [Concomitant]
     Active Substance: SUMATRIPTAN SUCCINATE
  15. TRILEPTAL [Concomitant]
     Active Substance: OXCARBAZEPINE
  16. INDERIDE [Concomitant]
     Active Substance: HYDROCHLOROTHIAZIDE\PROPRANOLOL HYDROCHLORIDE
  17. DEMEROL [Concomitant]
     Active Substance: MEPERIDINE HYDROCHLORIDE
  18. CARDENE [Concomitant]
     Active Substance: NICARDIPINE HYDROCHLORIDE
  19. NEURONTIN [Suspect]
     Active Substance: GABAPENTIN
     Dosage: 300.0MG UNKNOWN
     Route: 065
  20. FLEXERIL [Concomitant]
     Active Substance: CYCLOBENZAPRINE HYDROCHLORIDE
  21. AVALIDE [Concomitant]
     Active Substance: HYDROCHLOROTHIAZIDE\IRBESARTAN
  22. TEVETEN [Concomitant]
     Active Substance: EPROSARTAN MESYLATE
  23. UNIRETIC [Concomitant]
     Active Substance: HYDROCHLOROTHIAZIDE\MOEXIPRIL HYDROCHLORIDE
  24. VASERETIC [Concomitant]
     Active Substance: ENALAPRIL MALEATE\HYDROCHLOROTHIAZIDE
  25. ZOMIG [Suspect]
     Active Substance: ZOLMITRIPTAN
     Route: 045
     Dates: start: 20160729
  26. ULTRAM [Concomitant]
     Active Substance: TRAMADOL HYDROCHLORIDE
  27. BYSTOLIC [Concomitant]
     Active Substance: NEBIVOLOL HYDROCHLORIDE
  28. PRADAXA [Concomitant]
     Active Substance: DABIGATRAN ETEXILATE MESYLATE

REACTIONS (12)
  - Abdominal pain [Unknown]
  - Somnolence [Unknown]
  - Hypersensitivity [Unknown]
  - Chest pain [Unknown]
  - Diarrhoea [Unknown]
  - Feeling abnormal [Unknown]
  - Syncope [Unknown]
  - Grip strength decreased [Unknown]
  - Dysarthria [Unknown]
  - Vomiting [Unknown]
  - Tremor [Unknown]
  - Lethargy [Unknown]
